FAERS Safety Report 7042631-9 (Version None)
Quarter: 2010Q4

REPORT INFORMATION
  Report Type: 
  Country: None (occurrence: None)
  Receive Date: 20101013
  Receipt Date: 20101005
  Transmission Date: 20110411
  Serious: Yes (Hospitalization, Other)
  Sender: FDA-Public Use
  Company Number: US-AMGEN-KDL443985

PATIENT
  Sex: Female
  Weight: 49 kg

DRUGS (6)
  1. PROCRIT [Suspect]
     Indication: ANAEMIA
     Route: 058
     Dates: start: 20100401
  2. INTERFERON [Concomitant]
     Route: 058
  3. RIBAVIRIN [Concomitant]
     Route: 048
  4. RIBAVIRIN [Concomitant]
     Route: 048
  5. NEUPOGEN [Concomitant]
     Indication: PRODUCT USED FOR UNKNOWN INDICATION
     Route: 058
     Dates: start: 20100101
  6. SYNTHROID [Concomitant]
     Route: 048
     Dates: start: 20100101

REACTIONS (5)
  - DRUG INEFFECTIVE [None]
  - HAEMOGLOBIN DECREASED [None]
  - INJECTION SITE ERYTHEMA [None]
  - INJECTION SITE HAEMATOMA [None]
  - LIMB DISCOMFORT [None]
